FAERS Safety Report 13896420 (Version 1)
Quarter: 2017Q3

REPORT INFORMATION
  Report Type: Spontaneous
  Country: US (occurrence: None)
  Receive Date: 20170815
  Receipt Date: 20170815
  Transmission Date: 20171127
  Serious: Yes (Hospitalization)
  Sender: FDA-Public Use
  Company Number: None

PATIENT
  Age: 62 Year
  Sex: Male
  Weight: 84.5 kg

DRUGS (3)
  1. LISINOPRIL. [Suspect]
     Active Substance: LISINOPRIL
     Indication: CEREBROVASCULAR ACCIDENT
     Route: 042
  2. LISINOPRIL. [Suspect]
     Active Substance: LISINOPRIL
     Indication: CEREBROVASCULAR ACCIDENT
     Route: 048
     Dates: start: 20130218, end: 20170809
  3. LISINOPRIL. [Suspect]
     Active Substance: LISINOPRIL
     Indication: HYPERTENSION
     Route: 048
     Dates: start: 20130218, end: 20170809

REACTIONS (1)
  - Angioedema [None]

NARRATIVE: CASE EVENT DATE: 20170809
